FAERS Safety Report 14949327 (Version 12)
Quarter: 2020Q3

REPORT INFORMATION
  Report Type: Report from Study
  Country: US (occurrence: US)
  Receive Date: 20180529
  Receipt Date: 20200702
  Transmission Date: 20201102
  Serious: Yes (Death, Hospitalization)
  Sender: FDA-Public Use
  Company Number: US-ACTELION-A-NJ2018-172609

PATIENT
  Age: 62 Year
  Sex: Female

DRUGS (20)
  1. ATORVASTATIN [Concomitant]
     Active Substance: ATORVASTATIN
     Dosage: 80 MG
     Dates: start: 20190505
  2. FUROSEMIDE. [Concomitant]
     Active Substance: FUROSEMIDE
  3. TORSEMIDE. [Concomitant]
     Active Substance: TORSEMIDE
     Dosage: 20 MG
     Dates: start: 20190505
  4. PREDNISONE. [Concomitant]
     Active Substance: PREDNISONE
  5. FERROUS SULFATE. [Concomitant]
     Active Substance: FERROUS SULFATE
     Dosage: 325 MG
     Dates: start: 20191016
  6. MYCOPHENOLATE [Concomitant]
     Active Substance: MYCOPHENOLIC ACID
     Dosage: 500 MG
     Dates: start: 20190505
  7. MAGNESIUM OXIDE. [Concomitant]
     Active Substance: MAGNESIUM OXIDE
  8. BUPROPION. [Concomitant]
     Active Substance: BUPROPION
     Dosage: 150 MG
     Dates: start: 20190505
  9. OPSUMIT [Suspect]
     Active Substance: MACITENTAN
     Indication: PULMONARY ARTERIAL HYPERTENSION
     Dosage: 10 MG, QD
     Route: 048
     Dates: start: 20180427, end: 20191214
  10. AMLODIPINE BENAZEPRIL [Concomitant]
     Active Substance: AMLODIPINE BESYLATE\BENAZEPRIL HYDROCHLORIDE
  11. SPIRONOLACTONE. [Concomitant]
     Active Substance: SPIRONOLACTONE
  12. ASPIRIN. [Concomitant]
     Active Substance: ASPIRIN
     Dosage: 81 MG
     Dates: start: 20190505
  13. GABAPENTIN. [Concomitant]
     Active Substance: GABAPENTIN
     Dosage: 100 MG
     Dates: start: 20190505
  14. POTASSIUM CHLORIDE. [Concomitant]
     Active Substance: POTASSIUM CHLORIDE
     Dosage: 10 MEQ
     Dates: start: 20190505
  15. SILDENAFIL. [Concomitant]
     Active Substance: SILDENAFIL
  16. BENZONATATE. [Concomitant]
     Active Substance: BENZONATATE
  17. PROAIR HFA [Concomitant]
     Active Substance: ALBUTEROL SULFATE
  18. CLONAZEPAM. [Concomitant]
     Active Substance: CLONAZEPAM
     Dosage: 0.5 MG
     Dates: start: 20190505
  19. OXYGEN. [Concomitant]
     Active Substance: OXYGEN
     Route: 045
  20. ALBUTEROL. [Concomitant]
     Active Substance: ALBUTEROL
     Dosage: 90 MCG
     Dates: start: 20190505

REACTIONS (30)
  - Pyrexia [Unknown]
  - Productive cough [Unknown]
  - Septic shock [Recovered/Resolved]
  - Tachycardia [Not Recovered/Not Resolved]
  - Dizziness [Recovered/Resolved]
  - Blood lactic acid increased [Recovered/Resolved]
  - Feeling jittery [Recovered/Resolved]
  - Malaise [Recovered/Resolved]
  - Epistaxis [Recovered/Resolved]
  - Hypotension [Recovered/Resolved]
  - Brain natriuretic peptide increased [Unknown]
  - Mean arterial pressure [Not Recovered/Not Resolved]
  - Dyspnoea [Recovered/Resolved]
  - Rhinorrhoea [Recovered/Resolved]
  - Dyschezia [Recovered/Resolved]
  - Cystic fibrosis [Unknown]
  - Death [Fatal]
  - Nasopharyngitis [Recovered/Resolved]
  - Sputum discoloured [Unknown]
  - Dysarthria [Recovered/Resolved]
  - Hypoxia [Recovered/Resolved]
  - Oropharyngeal pain [Unknown]
  - Hospitalisation [Unknown]
  - Confusional state [Unknown]
  - Blood alkaline phosphatase increased [Unknown]
  - Hilar lymphadenopathy [Unknown]
  - Condition aggravated [Unknown]
  - Tachypnoea [Not Recovered/Not Resolved]
  - Pneumonia [Recovered/Resolved]
  - Blood bilirubin increased [Unknown]

NARRATIVE: CASE EVENT DATE: 20180509
